FAERS Safety Report 5228808-3 (Version None)
Quarter: 2007Q1

REPORT INFORMATION
  Report Type: 
  Country: None (occurrence: None)
  Receive Date: 20070205
  Receipt Date: 20070202
  Transmission Date: 20070707
  Serious: Yes (Hospitalization)
  Sender: FDA-Public Use
  Company Number: JP-BRISTOL-MYERS SQUIBB COMPANY-13624614

PATIENT
  Age: 52 Year
  Sex: Female

DRUGS (2)
  1. MITOMYCIN [Suspect]
     Indication: OVARIAN CANCER
     Route: 042
     Dates: start: 20061020, end: 20061020
  2. IRINOTECAN HCL [Concomitant]
     Route: 042
     Dates: start: 20061020, end: 20061020

REACTIONS (3)
  - ANAEMIA [None]
  - PLATELET COUNT DECREASED [None]
  - RENAL IMPAIRMENT [None]
